FAERS Safety Report 21713663 (Version 1)
Quarter: 2022Q4

REPORT INFORMATION
  Report Type: Spontaneous
  Country: US (occurrence: US)
  Receive Date: 20221212
  Receipt Date: 20221212
  Transmission Date: 20230112
  Serious: No
  Sender: FDA-Public Use
  Company Number: US-AMERICAN REGENT INC-2022002103

PATIENT
  Age: 46 Year
  Sex: Female
  Weight: 68.027 kg

DRUGS (17)
  1. VENOFER [Suspect]
     Active Substance: IRON SUCROSE
     Indication: Iron deficiency anaemia
     Dosage: 200 MILLIGRAM
     Route: 042
     Dates: start: 20200108, end: 20200108
  2. VENOFER [Suspect]
     Active Substance: IRON SUCROSE
     Indication: Heavy menstrual bleeding
     Dosage: 200 MILLIGRAM
     Route: 042
     Dates: start: 20200122, end: 20200122
  3. VENOFER [Suspect]
     Active Substance: IRON SUCROSE
     Indication: Uterine leiomyoma
     Dosage: 200 MILLIGRAM IN 100 ML OF NORMAL SALINE
     Route: 042
     Dates: start: 20200205, end: 20200205
  4. VENOFER [Suspect]
     Active Substance: IRON SUCROSE
     Dosage: 100 MILLIGRAM
     Route: 042
     Dates: start: 20200226, end: 20200226
  5. VENOFER [Suspect]
     Active Substance: IRON SUCROSE
     Dosage: 300 MILLIGRAM IN 250 ML OF NS
     Route: 042
     Dates: start: 20210324, end: 20210324
  6. VENOFER [Suspect]
     Active Substance: IRON SUCROSE
     Dosage: 300 MILLIGRAM IN 250 ML OF NS
     Route: 042
     Dates: start: 20210331, end: 20210331
  7. VENOFER [Suspect]
     Active Substance: IRON SUCROSE
     Dosage: 300 MILLIGRAM IN 250 ML OF NS
     Route: 042
     Dates: start: 20210407, end: 20210407
  8. VENOFER [Suspect]
     Active Substance: IRON SUCROSE
     Dosage: 200 MILLIGRAM IN 250 ML OF NORMAL SALINE
     Route: 042
     Dates: start: 20210927, end: 20210927
  9. VENOFER [Suspect]
     Active Substance: IRON SUCROSE
     Dosage: 200 MILLIGRAM IN 250 ML OF NORMAL SALINE
     Route: 042
     Dates: start: 20211004, end: 20211004
  10. VENOFER [Suspect]
     Active Substance: IRON SUCROSE
     Dosage: 200 MILLIGRAM IN 250 ML OF NORMAL SALINE
     Route: 042
     Dates: start: 20211018, end: 20211018
  11. VENOFER [Suspect]
     Active Substance: IRON SUCROSE
     Dosage: 200 MILLIGRAM IN 250 ML OF NORMAL SALINE
     Route: 042
     Dates: start: 20211025, end: 20211025
  12. VENOFER [Suspect]
     Active Substance: IRON SUCROSE
     Dosage: 200 MILLIGRAM IN 250 ML OF NORMAL SALINE
     Route: 042
     Dates: start: 20211101, end: 20211101
  13. VENOFER [Suspect]
     Active Substance: IRON SUCROSE
     Dosage: 200 MILLIGRAM IN 250 ML OF NORMAL SALINE
     Route: 042
     Dates: start: 20211122, end: 20211122
  14. VENOFER [Suspect]
     Active Substance: IRON SUCROSE
     Dosage: 300 MILLIGRAM
     Route: 042
     Dates: start: 20200612, end: 20200612
  15. VENOFER [Suspect]
     Active Substance: IRON SUCROSE
     Dosage: 300 MILLIGRAM
     Route: 042
     Dates: start: 20200617, end: 20200617
  16. TIROSINT [Concomitant]
     Active Substance: LEVOTHYROXINE SODIUM
     Indication: Product used for unknown indication
     Dosage: 75 MICROGRAM, QD
     Route: 048
  17. ASPIRIN [Concomitant]
     Active Substance: ASPIRIN
     Indication: Product used for unknown indication
     Dosage: 81 MILLIGRAM, QD
     Route: 048

REACTIONS (1)
  - Heavy menstrual bleeding [Not Recovered/Not Resolved]

NARRATIVE: CASE EVENT DATE: 20211101
